FAERS Safety Report 15926451 (Version 2)
Quarter: 2019Q1

REPORT INFORMATION
  Report Type: Spontaneous
  Country: US (occurrence: US)
  Receive Date: 20190205
  Receipt Date: 20190219
  Transmission Date: 20190417
  Serious: No
  Sender: FDA-Public Use
  Company Number: US-ALLERGAN-1846604US

PATIENT

DRUGS (2)
  1. BOTOX COSMETIC [Suspect]
     Active Substance: ONABOTULINUMTOXINA
     Indication: SKIN WRINKLING
     Dosage: 25 UNITS, SINGLE
     Route: 030
     Dates: start: 201712, end: 201712
  2. JUVEDERM [Concomitant]
     Active Substance: HYALURONIC ACID
     Indication: SKIN WRINKLING
     Dosage: UNK UNK, SINGLE
     Route: 065
     Dates: start: 2017, end: 2017

REACTIONS (2)
  - Contusion [Recovered/Resolved]
  - Injection site erythema [Recovered/Resolved]

NARRATIVE: CASE EVENT DATE: 201712
